FAERS Safety Report 8383051-4 (Version None)
Quarter: 2012Q2

REPORT INFORMATION
  Report Type: 
  Country: None (occurrence: None)
  Receive Date: 20120524
  Receipt Date: 20120521
  Transmission Date: 20120825
  Serious: No
  Sender: FDA-Public Use
  Company Number: PHEH2012US007416

PATIENT
  Sex: Female
  Weight: 51.701 kg

DRUGS (12)
  1. NORVASC [Concomitant]
     Dosage: 10 MG, QD
     Route: 048
  2. VITAMIN E [Concomitant]
     Dosage: 400, QD
     Route: 048
  3. RESTADIN [Concomitant]
     Dosage: EYE, BID
  4. MULTIVITAMIN [Concomitant]
     Dosage: UNK UKN, QD
     Route: 048
  5. BYSTOLIC [Concomitant]
     Dosage: 5 MG, QD
  6. STOOL SOFTENER [Concomitant]
  7. VITAMIN D [Concomitant]
     Dosage: UNK UKN, QD
     Route: 048
  8. VALIUM [Concomitant]
     Dosage: 5 UKN, BID
     Route: 048
  9. RECLAST [Suspect]
     Indication: OSTEOPOROSIS
     Dosage: UNK UKN, UNK
     Route: 042
     Dates: start: 20120403
  10. NASONEX [Concomitant]
     Dosage: UNK UKN, BID
  11. PLAVIX [Concomitant]
     Dosage: 75 MG, QD
     Route: 048
  12. PROTONIX [Concomitant]
     Dosage: 40 UKN, BID
     Route: 048

REACTIONS (4)
  - ABDOMINAL DISCOMFORT [None]
  - CHILLS [None]
  - ABDOMINAL PAIN UPPER [None]
  - HIATUS HERNIA [None]
